FAERS Safety Report 6146670-1 (Version None)
Quarter: 2009Q2

REPORT INFORMATION
  Report Type: 
  Country: None (occurrence: None)
  Receive Date: 20090407
  Receipt Date: 20090323
  Transmission Date: 20091009
  Serious: Yes (Disabling)
  Sender: FDA-Public Use
  Company Number: DK-GENENTECH-263102

PATIENT
  Sex: Male

DRUGS (1)
  1. MABTHERA [Suspect]
     Indication: PEMPHIGUS
     Dosage: 1000 MG, Q2W
     Route: 042
     Dates: start: 20061129, end: 20070905

REACTIONS (1)
  - POLYNEUROPATHY [None]
